FAERS Safety Report 6106699-6 (Version None)
Quarter: 2009Q1

REPORT INFORMATION
  Report Type: 
  Country: None (occurrence: None)
  Receive Date: 20090305
  Receipt Date: 20090302
  Transmission Date: 20090719
  Serious: Yes (Other)
  Sender: FDA-Public Use
  Company Number: 186425USA

PATIENT
  Sex: Female

DRUGS (2)
  1. LEUCOVORIN CALCIUM           TABLET 25MG      (FOLINIC ACID) [Suspect]
     Indication: FOLATE DEFICIENCY
     Dosage: SIX 25 MG TABLETS ONCE DAILY (25 MG, 6 IN 1 D), ORAL
     Route: 048
     Dates: start: 20000717
  2. ASCORBIC ACID [Concomitant]

REACTIONS (1)
  - OTOTOXICITY [None]
